FAERS Safety Report 4923105-5 (Version None)
Quarter: 2006Q1

REPORT INFORMATION
  Report Type: 
  Country: None (occurrence: None)
  Receive Date: 20060113
  Receipt Date: 20050308
  Transmission Date: 20060701
  Serious: Yes (Other)
  Sender: FDA-Public Use
  Company Number: HQWYE754001SEP04

PATIENT
  Age: 64 Year
  Sex: Female
  Weight: 81.72 kg

DRUGS (5)
  1. PREMPRO [Suspect]
     Indication: HORMONE REPLACEMENT THERAPY
     Dosage: ORAL
     Route: 048
     Dates: start: 19970610
  2. PREMPRO [Suspect]
     Indication: MENOPAUSAL SYMPTOMS
     Dosage: ORAL
     Route: 048
     Dates: start: 19970610
  3. LIPITOR [Concomitant]
  4. ASPIRIN [Concomitant]
  5. DITROPAN [Concomitant]

REACTIONS (1)
  - BREAST CANCER [None]
